FAERS Safety Report 9047077 (Version 1)
Quarter: 2013Q1

REPORT INFORMATION
  Report Type: Spontaneous
  Country: US (occurrence: None)
  Receive Date: 20130129
  Receipt Date: 20130129
  Transmission Date: 20140127
  Serious: Yes (Death)
  Sender: FDA-Public Use
  Company Number: None

PATIENT
  Age: 60 Year
  Sex: Male

DRUGS (1)
  1. SUTENT [Suspect]
     Dosage: 50MG DAILY FOR 4 WEEKS THEN  PO?
     Route: 048
     Dates: start: 20130115, end: 20130123

REACTIONS (1)
  - Death [None]
